FAERS Safety Report 15677082 (Version 1)
Quarter: 2018Q4

REPORT INFORMATION
  Report Type: Spontaneous
  Country: US (occurrence: US)
  Receive Date: 20181130
  Receipt Date: 20181130
  Transmission Date: 20190205
  Serious: No
  Sender: FDA-Public Use
  Company Number: US-PFIZER INC-2018488755

PATIENT
  Age: 47 Year
  Sex: Female

DRUGS (1)
  1. GENOTROPIN [Suspect]
     Active Substance: SOMATROPIN
     Dosage: 0.8 MG, DAILY
     Dates: start: 20121203

REACTIONS (4)
  - Blood thyroid stimulating hormone decreased [Unknown]
  - Blood 25-hydroxycholecalciferol increased [Unknown]
  - Blood glucose increased [Unknown]
  - Tri-iodothyronine free increased [Unknown]

NARRATIVE: CASE EVENT DATE: 20180507
